FAERS Safety Report 23859636 (Version 1)
Quarter: 2024Q2

REPORT INFORMATION
  Report Type: Spontaneous
  Country: SA (occurrence: SA)
  Receive Date: 20240515
  Receipt Date: 20240515
  Transmission Date: 20240715
  Serious: Yes (Death)
  Sender: FDA-Public Use
  Company Number: SA-PFIZER INC-202400107346

PATIENT

DRUGS (2)
  1. TYGACIL [Suspect]
     Active Substance: TIGECYCLINE
     Indication: Abdominal infection
     Dosage: UNK
  2. TYGACIL [Suspect]
     Active Substance: TIGECYCLINE
     Indication: Skin bacterial infection

REACTIONS (2)
  - Drug ineffective [Fatal]
  - Sepsis [Fatal]
